FAERS Safety Report 8985847 (Version 1)
Quarter: 2012Q4

REPORT INFORMATION
  Report Type: 
  Country: FR (occurrence: FR)
  Receive Date: 20121226
  Receipt Date: 20121226
  Transmission Date: 20130627
  Serious: Yes (Hospitalization, Other)
  Sender: FDA-Public Use
  Company Number: FR-009507513-2011SP054119

PATIENT
  Age: 15 Year
  Sex: Female

DRUGS (4)
  1. AERIUS [Suspect]
     Indication: ASTHMA
     Route: 048
     Dates: end: 20111008
  2. GARDASIL [Suspect]
     Indication: PROPHYLAXIS
     Dosage: 1 DF
     Route: 030
     Dates: start: 20101009, end: 20101009
  3. NEISVAC-C [Suspect]
     Indication: PROPHYLAXIS
     Dosage: 1 DF, ONCE
     Route: 030
     Dates: start: 201110, end: 201110
  4. VENTOLINE [Suspect]
     Indication: ASTHMA
     Route: 055
     Dates: end: 20111008

REACTIONS (1)
  - Pancreatitis acute [Recovered/Resolved]
